FAERS Safety Report 5608537-4 (Version None)
Quarter: 2008Q1

REPORT INFORMATION
  Report Type: 
  Country: None (occurrence: None)
  Receive Date: 20080125
  Receipt Date: 20080115
  Transmission Date: 20080703
  Serious: Yes (Hospitalization)
  Sender: FDA-Public Use
  Company Number: GXKR2005GB01114

PATIENT
  Age: 52 Year
  Sex: Male

DRUGS (5)
  1. IBUPROFEN [Suspect]
     Dosage: 3-5
  2. ACETAMINOPHEN [Suspect]
     Dosage: 24 DF
  3. PREDNISONE [Concomitant]
  4. PAROXETINE HYDROCHLORIDE [Concomitant]
  5. ALCOHOL           (ETHANOL) [Concomitant]

REACTIONS (11)
  - ABNORMAL DREAMS [None]
  - AGGRESSION [None]
  - ANXIETY [None]
  - DISTURBANCE IN ATTENTION [None]
  - DRUG WITHDRAWAL SYNDROME [None]
  - EMOTIONAL DISORDER [None]
  - FEELING ABNORMAL [None]
  - IRRITABILITY [None]
  - MULTIPLE DRUG OVERDOSE [None]
  - NIGHTMARE [None]
  - SUICIDE ATTEMPT [None]
